FAERS Safety Report 7866020-X (Version None)
Quarter: 2011Q4

REPORT INFORMATION
  Report Type: 
  Country: None (occurrence: None)
  Receive Date: 20111028
  Receipt Date: 20110408
  Transmission Date: 20120403
  Serious: No
  Sender: FDA-Public Use
  Company Number: US-GLAXOSMITHKLINE-A0922088A

PATIENT
  Age: 56 Year
  Sex: Female

DRUGS (6)
  1. ASPIRIN [Concomitant]
  2. WATER PILL [Concomitant]
  3. ADVAIR DISKUS 100/50 [Suspect]
     Indication: COUGH
     Dosage: 1PUFF PER DAY
     Route: 055
     Dates: start: 20100101
  4. TOPROL-XL [Concomitant]
  5. LEXAPRO [Concomitant]
  6. VITAMIN TAB [Concomitant]

REACTIONS (2)
  - DRUG INEFFECTIVE [None]
  - PRODUCT QUALITY ISSUE [None]
